FAERS Safety Report 16044357 (Version 1)
Quarter: 2019Q1

REPORT INFORMATION
  Report Type: Spontaneous
  Country: AU (occurrence: AU)
  Receive Date: 20190306
  Receipt Date: 20190306
  Transmission Date: 20190418
  Serious: Yes (Hospitalization, Other)
  Sender: FDA-Public Use
  Company Number: PHHY2018AU008181

PATIENT
  Age: 47 Year
  Sex: Male

DRUGS (6)
  1. CLOZARIL [Suspect]
     Active Substance: CLOZAPINE
     Dosage: 850 MG, QD (200 MG AM + 650 MG PM)
     Route: 048
     Dates: start: 20180801
  2. CLOZARIL [Suspect]
     Active Substance: CLOZAPINE
     Dosage: 825 MG, QD (200 MG AM + 625 MG PM)
     Route: 048
     Dates: start: 20180814
  3. CLOZARIL [Suspect]
     Active Substance: CLOZAPINE
     Indication: SCHIZOPHRENIA
     Dosage: 825 MG, UNK
     Route: 048
     Dates: start: 20040713
  4. CLOZARIL [Suspect]
     Active Substance: CLOZAPINE
     Dosage: 825 MG, QD (200 MG AM PLUS 625 MG PM)
     Route: 048
     Dates: start: 20180807
  5. VALPROATE SODIUM. [Suspect]
     Active Substance: VALPROATE SODIUM
     Indication: PRODUCT USED FOR UNKNOWN INDICATION
     Dosage: UNK
     Route: 065
     Dates: start: 201902
  6. CLOZARIL [Suspect]
     Active Substance: CLOZAPINE
     Dosage: 825 MG, QD (200 MG AM PLUS 625 MG PM)
     Route: 048
     Dates: start: 20180723

REACTIONS (6)
  - Lymphocyte count decreased [Not Recovered/Not Resolved]
  - Disorientation [Unknown]
  - Antipsychotic drug level above therapeutic [Not Recovered/Not Resolved]
  - Nervous system disorder [Unknown]
  - Thrombocytopenia [Recovered/Resolved]
  - Neuroleptic malignant syndrome [Unknown]

NARRATIVE: CASE EVENT DATE: 201803
